FAERS Safety Report 12280604 (Version 1)
Quarter: 2016Q2

REPORT INFORMATION
  Report Type: Spontaneous
  Country: US (occurrence: None)
  Receive Date: 20160418
  Receipt Date: 20160418
  Transmission Date: 20160815
  Serious: No
  Sender: FDA-Public Use
  Company Number: None

PATIENT
  Age: 60 Year
  Sex: Female
  Weight: 99.79 kg

DRUGS (18)
  1. FLUOXETINE 40MG CAP VEN, 40 MG VENSUN [Suspect]
     Active Substance: FLUOXETINE HYDROCHLORIDE
     Indication: DEPRESSION
     Dosage: 30 CAPSULES IN THE MORNING TAKEN BY MOUTH
     Route: 048
     Dates: start: 20160328, end: 20160414
  2. SUDAFED [Concomitant]
     Active Substance: PSEUDOEPHEDRINE HYDROCHLORIDE
  3. NAPROXEN SODIUM. [Concomitant]
     Active Substance: NAPROXEN SODIUM
  4. XANAX [Concomitant]
     Active Substance: ALPRAZOLAM
  5. VICODIN [Concomitant]
     Active Substance: ACETAMINOPHEN\HYDROCODONE BITARTRATE
  6. ASTRAGALUS [Concomitant]
  7. VITAMIN B COMPLEX [Concomitant]
     Active Substance: CYANOCOBALAMIN\DEXPANTHENOL\NIACINAMIDE\PYRIDOXINE HYDROCHLORIDE\RIBOFLAVIN 5^-PHOSPHATE SODIUM\THIAMINE HYDROCHLORIDE\VITAMIN B COMPLEX
  8. VITAMIN D3 [Concomitant]
     Active Substance: CHOLECALCIFEROL
  9. CPAP MACHINE [Concomitant]
  10. LOSARTAN. [Concomitant]
     Active Substance: LOSARTAN
  11. IBUPROFEN. [Concomitant]
     Active Substance: IBUPROFEN
  12. VITAMIN A [Concomitant]
     Active Substance: VITAMIN A
  13. FLONASE [Concomitant]
     Active Substance: FLUTICASONE PROPIONATE
  14. C [Concomitant]
  15. E [Concomitant]
  16. CAPRYLIC ACID [Concomitant]
  17. IRON SUPPLEMENT [Concomitant]
     Active Substance: IRON
  18. MACA [Concomitant]

REACTIONS (5)
  - Gastrointestinal disorder [None]
  - Dyspepsia [None]
  - Nausea [None]
  - Product substitution issue [None]
  - Gastric disorder [None]

NARRATIVE: CASE EVENT DATE: 20160328
